FAERS Safety Report 11873598 (Version 2)
Quarter: 2016Q1

REPORT INFORMATION
  Report Type: Report from Study
  Country: FR (occurrence: FR)
  Receive Date: 20151228
  Receipt Date: 20160118
  Transmission Date: 20160526
  Serious: Yes (Other)
  Sender: FDA-Public Use
  Company Number: FR-ROCHE-1682492

PATIENT

DRUGS (1)
  1. BEVACIZUMAB [Suspect]
     Active Substance: BEVACIZUMAB
     Indication: OVARIAN CANCER
     Route: 065

REACTIONS (10)
  - Gastrointestinal fistula [Unknown]
  - Gastroduodenal ulcer [Unknown]
  - Gastrointestinal perforation [Unknown]
  - Hypertension [Unknown]
  - Haemorrhage [Unknown]
  - Proteinuria [Unknown]
  - Embolism [Unknown]
  - Lymphocele [Unknown]
  - Renal disorder [Unknown]
  - Abdominal hernia [Unknown]
